FAERS Safety Report 12886045 (Version 3)
Quarter: 2017Q2

REPORT INFORMATION
  Report Type: Spontaneous
  Country: US (occurrence: US)
  Receive Date: 20161026
  Receipt Date: 20170420
  Transmission Date: 20170830
  Serious: Yes (Hospitalization, Other)
  Sender: FDA-Public Use
  Company Number: US-ELI_LILLY_AND_COMPANY-US201610006662

PATIENT
  Age: 78 Year
  Sex: Male

DRUGS (3)
  1. HUMALOG [Suspect]
     Active Substance: INSULIN LISPRO
     Dosage: 54 U, QD
     Route: 065
     Dates: start: 201610
  2. HUMALOG [Suspect]
     Active Substance: INSULIN LISPRO
     Indication: TYPE 2 DIABETES MELLITUS
     Dosage: 2-6 U, BEFORE MEALS
     Route: 065
     Dates: start: 2005
  3. TRESIBA [Concomitant]
     Active Substance: INSULIN DEGLUDEC
     Indication: PRODUCT USED FOR UNKNOWN INDICATION
     Dosage: 54 U, QD
     Route: 065
     Dates: start: 201602

REACTIONS (4)
  - Wrong drug administered [Recovered/Resolved]
  - Renal failure [Unknown]
  - Blood glucose decreased [Recovered/Resolved]
  - Insulin resistance [Not Recovered/Not Resolved]

NARRATIVE: CASE EVENT DATE: 201610
